FAERS Safety Report 6743370-1 (Version None)
Quarter: 2010Q2

REPORT INFORMATION
  Report Type: 
  Country: None (occurrence: None)
  Receive Date: 20100527
  Receipt Date: 20100517
  Transmission Date: 20101027
  Serious: Yes (Life-Threatening, Hospitalization)
  Sender: FDA-Public Use
  Company Number: FR-BRISTOL-MYERS SQUIBB COMPANY-15121395

PATIENT
  Age: 62 Year
  Sex: Male

DRUGS (8)
  1. GLUCOPHAGE [Suspect]
     Indication: TYPE 2 DIABETES MELLITUS
     Dates: end: 20100223
  2. BISOPROLOL FUMARATE [Concomitant]
     Indication: HYPERTENSION
  3. LANTUS [Concomitant]
     Indication: TYPE 2 DIABETES MELLITUS
  4. GLYBURIDE [Concomitant]
     Indication: TYPE 2 DIABETES MELLITUS
  5. AMLOR [Concomitant]
     Indication: HYPERTENSION
  6. COVERSYL [Concomitant]
     Indication: HYPERTENSION
  7. FLUDEX [Concomitant]
     Indication: HYPERTENSION
  8. PREVISCAN [Concomitant]
     Indication: ATRIAL FIBRILLATION

REACTIONS (3)
  - METABOLIC ACIDOSIS [None]
  - RENAL FAILURE [None]
  - RESPIRATORY ACIDOSIS [None]
